FAERS Safety Report 6965777-X (Version None)
Quarter: 2010Q3

REPORT INFORMATION
  Report Type: 
  Country: None (occurrence: None)
  Receive Date: 20100903
  Receipt Date: 20100831
  Transmission Date: 20110219
  Serious: Yes (Hospitalization)
  Sender: FDA-Public Use
  Company Number: FR-ROCHE-724594

PATIENT
  Sex: Female

DRUGS (4)
  1. RIVOTRIL [Suspect]
     Indication: PRODUCT USED FOR UNKNOWN INDICATION
     Dosage: HALF DOSE IN MORNING, HALF DOSE IN LUNCH TIME AND 1 DOSE IN THE EVENING.
     Route: 048
     Dates: start: 20090101
  2. RISPERDAL CONSTA [Suspect]
     Indication: PRODUCT USED FOR UNKNOWN INDICATION
     Dosage: INJECTIONS
     Route: 030
     Dates: start: 20090301, end: 20100403
  3. TOPIRAMATE [Suspect]
     Indication: PRODUCT USED FOR UNKNOWN INDICATION
     Dosage: ONE DOSE IN MORNING AND TWO DOSES IN EVENING
     Route: 048
     Dates: start: 20090301
  4. TERCIAN [Suspect]
     Indication: PRODUCT USED FOR UNKNOWN INDICATION
     Route: 048
     Dates: start: 20090101

REACTIONS (1)
  - DEEP VEIN THROMBOSIS [None]
